FAERS Safety Report 15846812 (Version 1)
Quarter: 2019Q1

REPORT INFORMATION
  Report Type: Spontaneous
  Country: SI (occurrence: SI)
  Receive Date: 20190121
  Receipt Date: 20190121
  Transmission Date: 20190417
  Serious: Yes (Hospitalization)
  Sender: FDA-Public Use
  Company Number: SI-TEVA-2019-SI-1001327

PATIENT
  Age: 76 Year
  Sex: Male

DRUGS (8)
  1. ASPIRIN 100 MG [Concomitant]
     Active Substance: ASPIRIN
     Route: 065
  2. NITROLINGUAL [Concomitant]
     Active Substance: NITROGLYCERIN
     Route: 065
  3. CIPRALEX [Concomitant]
     Active Substance: ESCITALOPRAM OXALATE
     Route: 065
  4. OKSALIPLATIN TEVA 5 MG/ML [Suspect]
     Active Substance: OXALIPLATIN
     Indication: COLORECTAL CANCER METASTATIC
     Route: 042
     Dates: start: 20181228, end: 20181228
  5. IRINOTEKANIJEV KLORID MYLAN 20 MG/ML [Suspect]
     Active Substance: IRINOTECAN HYDROCHLORIDE
     Indication: COLORECTAL CANCER METASTATIC
     Route: 042
     Dates: start: 20181228, end: 20181228
  6. ENAP 10 MG [Concomitant]
     Route: 065
  7. PROPAFENON 150 HEUMANN [Concomitant]
     Route: 065
  8. NOLPAZA 20 MG [Concomitant]
     Route: 065

REACTIONS (2)
  - Muscular weakness [Recovered/Resolved]
  - Intention tremor [Recovered/Resolved]

NARRATIVE: CASE EVENT DATE: 20181228
